FAERS Safety Report 5116991-X (Version None)
Quarter: 2006Q3

REPORT INFORMATION
  Report Type: 
  Country: None (occurrence: None)
  Receive Date: 20060922
  Receipt Date: 20060911
  Transmission Date: 20061208
  Serious: Yes (Disabling)
  Sender: FDA-Public Use
  Company Number: NLWYE464013MAR06

PATIENT
  Age: 54 Year
  Sex: Male

DRUGS (5)
  1. EFFEXOR XR [Suspect]
     Indication: DEPRESSION
     Dosage: 75 MG 1X PER 1 DAY
     Route: 048
     Dates: start: 20050619, end: 20050701
  2. EFFEXOR [Suspect]
     Indication: DEPRESSION
     Dosage: SEE MAGE
     Route: 048
     Dates: start: 20050801, end: 20050101
  3. EFFEXOR [Suspect]
     Indication: DEPRESSION
     Dosage: SEE MAGE
     Route: 048
     Dates: start: 20050701, end: 20050801
  4. EFFEXOR [Suspect]
     Indication: DEPRESSION
     Dosage: SEE MAGE
     Route: 048
     Dates: start: 20050101, end: 20060217
  5. EFFEXOR [Suspect]
     Indication: DEPRESSION
     Dosage: SEE MAGE
     Route: 048
     Dates: start: 20060220, end: 20060225

REACTIONS (7)
  - DRUG INEFFECTIVE [None]
  - FEELING ABNORMAL [None]
  - LIBIDO DECREASED [None]
  - MICTURITION DISORDER [None]
  - PUPILS UNEQUAL [None]
  - TINNITUS [None]
  - TREMOR [None]
